FAERS Safety Report 11244117 (Version 1)
Quarter: 2015Q3

REPORT INFORMATION
  Report Type: Report from Study
  Country: GB (occurrence: GB)
  Receive Date: 20150707
  Receipt Date: 20150707
  Transmission Date: 20151125
  Serious: Yes (Hospitalization)
  Sender: FDA-Public Use
  Company Number: GB-IPSEN BIOPHARMACEUTICALS, INC.-2015-4805

PATIENT
  Age: 71 Year
  Sex: Male

DRUGS (1)
  1. SOMATULINE AUTOGEL [Suspect]
     Active Substance: LANREOTIDE ACETATE
     Indication: NEUROENDOCRINE TUMOUR
     Dosage: 120 MG
     Route: 065
     Dates: start: 2011

REACTIONS (11)
  - Drug administration error [Unknown]
  - Vomiting [Recovered/Resolved]
  - Injection site nodule [Unknown]
  - Feeding disorder [Unknown]
  - General physical health deterioration [Unknown]
  - Jaundice [Unknown]
  - Urinary tract infection [Unknown]
  - Weight decreased [Unknown]
  - Diarrhoea [Unknown]
  - Confusional state [Unknown]
  - Malaise [Unknown]

NARRATIVE: CASE EVENT DATE: 2015
